FAERS Safety Report 11533455 (Version 1)
Quarter: 2015Q3

REPORT INFORMATION
  Report Type: Report from Study
  Country: US (occurrence: US)
  Receive Date: 20150921
  Receipt Date: 20150921
  Transmission Date: 20151125
  Serious: Yes (Hospitalization, Other)
  Sender: FDA-Public Use
  Company Number: US-GILEAD-2012-0049335

PATIENT
  Age: 57 Year
  Sex: Female

DRUGS (11)
  1. EXFORGE [Concomitant]
     Active Substance: AMLODIPINE BESYLATE\VALSARTAN
     Dosage: UNK, QD
  2. NITROGLYCERINE [Concomitant]
     Active Substance: NITROGLYCERIN
     Dosage: 0.4 MG, PRN
     Route: 060
  3. EPLERENONE. [Concomitant]
     Active Substance: EPLERENONE
     Dosage: 12.5 MG, QD
  4. IMIPRAMINE [Concomitant]
     Active Substance: IMIPRAMINE
     Dosage: 10 MG, QD
  5. LEVOTHYROXINE. [Concomitant]
     Active Substance: LEVOTHYROXINE
     Dosage: 150 UG, QD
  6. REGADENOSON [Suspect]
     Active Substance: REGADENOSON
     Indication: NUCLEAR MAGNETIC RESONANCE IMAGING HEART
     Dosage: UNK
     Route: 042
     Dates: start: 20110818, end: 20110818
  7. COREG [Concomitant]
     Active Substance: CARVEDILOL
     Dosage: 25 MG, BID
  8. LISINOPRIL. [Concomitant]
     Active Substance: LISINOPRIL
     Dosage: 10 MG, QD
  9. ASPIRIN                            /00002701/ [Concomitant]
     Active Substance: ASPIRIN
     Dosage: 325 MG, QD
  10. RANOLAZINE [Suspect]
     Active Substance: RANOLAZINE
     Indication: ANGINA PECTORIS
     Dosage: UNK
     Route: 065
  11. LIPITOR [Concomitant]
     Active Substance: ATORVASTATIN CALCIUM
     Dosage: 40 MG, QD

REACTIONS (3)
  - Bronchospasm [Recovered/Resolved]
  - Wheezing [Recovered/Resolved]
  - Anaphylactic reaction [Recovered/Resolved]

NARRATIVE: CASE EVENT DATE: 20110818
